FAERS Safety Report 4639791-3 (Version None)
Quarter: 2005Q2

REPORT INFORMATION
  Report Type: 
  Country: None (occurrence: None)
  Receive Date: 20050328
  Receipt Date: 20050110
  Transmission Date: 20051028
  Serious: No
  Sender: FDA-Public Use
  Company Number: USA050187639

PATIENT
  Age: 42 Year
  Sex: Male
  Weight: 80 kg

DRUGS (4)
  1. STRATTERA [Suspect]
     Indication: ATTENTION DEFICIT/HYPERACTIVITY DISORDER
     Dosage: 25 MG DAY
     Dates: start: 20050106
  2. NITRIC OXIDE [Concomitant]
  3. AMBIEN [Concomitant]
  4. MELATONIN [Concomitant]

REACTIONS (8)
  - AGGRESSION [None]
  - DRY MOUTH [None]
  - EXCITABILITY [None]
  - FATIGUE [None]
  - FEELING ABNORMAL [None]
  - HYPERHIDROSIS [None]
  - IRRITABILITY [None]
  - PERSONALITY CHANGE [None]
